FAERS Safety Report 22066444 (Version 1)
Quarter: 2023Q1

REPORT INFORMATION
  Report Type: Spontaneous
  Country: US (occurrence: None)
  Receive Date: 20230306
  Receipt Date: 20230306
  Transmission Date: 20230418
  Serious: No
  Sender: FDA-Public Use
  Company Number: None

PATIENT
  Age: 84 Year
  Sex: Male
  Weight: 57.6 kg

DRUGS (6)
  1. JARDIANCE [Suspect]
     Active Substance: EMPAGLIFLOZIN
     Indication: Chronic kidney disease
     Dosage: OTHER QUANTITY : 1 TABLET(S);?
     Route: 048
     Dates: start: 20230224, end: 20230304
  2. ALPRAZOLAM [Concomitant]
     Active Substance: ALPRAZOLAM
  3. Lisinepril [Concomitant]
  4. VITAMINS [Concomitant]
     Active Substance: VITAMINS
  5. HERBALS\TURMERIC [Concomitant]
     Active Substance: HERBALS\TURMERIC
  6. CALCIUM CITRATE [Concomitant]
     Active Substance: CALCIUM CITRATE

REACTIONS (1)
  - Blood pressure diastolic decreased [None]

NARRATIVE: CASE EVENT DATE: 20230304
